FAERS Safety Report 22627116 (Version 1)
Quarter: 2023Q2

REPORT INFORMATION
  Report Type: Spontaneous
  Country: CN (occurrence: CN)
  Receive Date: 20230622
  Receipt Date: 20230622
  Transmission Date: 20230722
  Serious: Yes (Hospitalization)
  Sender: FDA-Public Use
  Company Number: CN-NOVOPROD-1078000

PATIENT
  Age: 71 Year
  Sex: Male
  Weight: 75 kg

DRUGS (2)
  1. NOVORAPID [Suspect]
     Active Substance: INSULIN ASPART
     Indication: Type 2 diabetes mellitus
     Dosage: 23 IU, QD (7 U AT BREAKFAST, 8 U AT LUNCH AND 8 U AT DINNER)
  2. TRESIBA [Suspect]
     Active Substance: INSULIN DEGLUDEC
     Indication: Type 2 diabetes mellitus
     Dosage: 12 IU, QD (BEFORE SLEEP)

REACTIONS (2)
  - Neoplasm [Unknown]
  - Blood glucose increased [Unknown]
